FAERS Safety Report 23046242 (Version 2)
Quarter: 2023Q4

REPORT INFORMATION
  Report Type: Report from Study
  Country: CA (occurrence: CA)
  Receive Date: 20231009
  Receipt Date: 20231102
  Transmission Date: 20240110
  Serious: Yes (Other)
  Sender: FDA-Public Use
  Company Number: CA-TEVA-2023-CA-2934473

PATIENT
  Age: 64 Year
  Sex: Female

DRUGS (8)
  1. CINQAIR [Suspect]
     Active Substance: RESLIZUMAB
     Indication: Asthma
     Route: 042
     Dates: start: 20180207
  2. Teva-Venlaflaxine XR [Concomitant]
     Indication: Product used for unknown indication
     Dosage: 75 MILLIGRAM DAILY;
     Route: 065
  3. SYNTHROID [Concomitant]
     Active Substance: LEVOTHYROXINE SODIUM
     Indication: Product used for unknown indication
     Dosage: .088 MILLIGRAM DAILY;
     Route: 065
  4. SYMBICORT [Concomitant]
     Active Substance: BUDESONIDE\FORMOTEROL FUMARATE DIHYDRATE
     Indication: Product used for unknown indication
     Dosage: INHALATIONS TWICE PER DAY (MAX 8 PUFFS PER DAY)
     Route: 011
  5. SPIRIVA [Concomitant]
     Active Substance: TIOTROPIUM BROMIDE MONOHYDRATE
     Indication: Product used for unknown indication
     Dosage: 18 MICROGRAM DAILY;
     Route: 065
  6. Sandoz-Pantoprazole [Concomitant]
     Indication: Product used for unknown indication
     Dosage: 40 MILLIGRAM DAILY; 30 MINUTES BEFORE BREAKFAST
     Route: 065
  7. BECLOMETHASONE DIPROPIONATE [Concomitant]
     Active Substance: BECLOMETHASONE DIPROPIONATE
     Indication: Product used for unknown indication
     Dosage: 50 MILLIGRAM DAILY;
     Route: 045
  8. CLIOQUINOL\FLUMETHASONE [Concomitant]
     Active Substance: CLIOQUINOL\FLUMETHASONE
     Indication: Ear infection
     Dosage: OVER THE COUNTER 0.02/1% 3 DROPS PER DAY IF 1 EAR IS INFECTED
     Route: 065

REACTIONS (1)
  - Gallbladder disorder [Unknown]
